FAERS Safety Report 12997542 (Version 4)
Quarter: 2017Q2

REPORT INFORMATION
  Report Type: Report from Study
  Country: GR (occurrence: GR)
  Receive Date: 20161205
  Receipt Date: 20170622
  Transmission Date: 20170830
  Serious: Yes (Life-Threatening, Other)
  Sender: FDA-Public Use
  Company Number: PHHY2016GR055356

PATIENT
  Age: 67 Year
  Sex: Female

DRUGS (1)
  1. TASIGNA [Suspect]
     Active Substance: NILOTINIB
     Indication: CHRONIC MYELOID LEUKAEMIA
     Dosage: 600 MG, QD (300 TO 600 MG)
     Route: 048
     Dates: start: 20130225, end: 20140324

REACTIONS (7)
  - Serum ferritin increased [Unknown]
  - Blood iron decreased [Unknown]
  - Thrombocytopenia [Unknown]
  - Therapeutic response decreased [Recovering/Resolving]
  - Anaemia [Not Recovered/Not Resolved]
  - Haematotoxicity [Recovering/Resolving]
  - Underdose [Recovering/Resolving]

NARRATIVE: CASE EVENT DATE: 20140324
